FAERS Safety Report 4632308-9 (Version None)
Quarter: 2005Q2

REPORT INFORMATION
  Report Type: 
  Country: None (occurrence: None)
  Receive Date: 20050411
  Receipt Date: 20050330
  Transmission Date: 20051028
  Serious: Yes (Other)
  Sender: FDA-Public Use
  Company Number: JP-ROCHE-400699

PATIENT
  Age: 56 Year
  Sex: Female

DRUGS (7)
  1. PEG-INTERFERON A-2A (RO 25-8310) [Suspect]
     Route: 058
     Dates: start: 20041022, end: 20041029
  2. PEG-INTERFERON A-2A (RO 25-8310) [Suspect]
     Route: 058
     Dates: start: 20041105, end: 20041105
  3. PEG-INTERFERON A-2A (RO 25-8310) [Suspect]
     Route: 058
     Dates: start: 20041112, end: 20041224
  4. PEG-INTERFERON A-2A (RO 25-8310) [Suspect]
     Route: 058
     Dates: start: 20050107, end: 20050218
  5. DIGOSIN [Concomitant]
     Route: 048
  6. RIZE [Concomitant]
     Route: 048
  7. WARFARIN SODIUM [Concomitant]
     Route: 048

REACTIONS (9)
  - ARTHRALGIA [None]
  - CARDIAC FAILURE CONGESTIVE [None]
  - CHILLS [None]
  - DEPRESSION [None]
  - HERPES SIMPLEX [None]
  - MUSCLE SPASMS [None]
  - NASOPHARYNGITIS [None]
  - PLATELET COUNT DECREASED [None]
  - WHITE BLOOD CELL COUNT DECREASED [None]
